FAERS Safety Report 7212844-1 (Version None)
Quarter: 2010Q4

REPORT INFORMATION
  Report Type: 
  Country: None (occurrence: None)
  Receive Date: 20101229
  Receipt Date: 20101112
  Transmission Date: 20110411
  Serious: Yes (Hospitalization, Other)
  Sender: FDA-Public Use
  Company Number: PL-021432

PATIENT
  Age: 73 Year
  Sex: Male

DRUGS (9)
  1. (CHLORAMBUCIL) [Suspect]
     Indication: CHRONIC LYMPHOCYTIC LEUKAEMIA
     Dosage: 10MG/M2 DAYS 1-7 EVERY 28 DAYS ; 300MG AT DAY 1, 1000MG AT DAY 8 FOLLOWED BY 1000MG EVERY 28 DAYS
     Dates: start: 20100512, end: 20100512
  2. (OFATUMUMAB) [Suspect]
     Dosage: INJECTION INTRAVENOUS (NOT OTHERWISE SPECIFEID)
     Route: 042
  3. MAGNESIUM SULFATE [Concomitant]
  4. (ELECTROLYTES) [Concomitant]
  5. (SODIUM CHLORIDE) [Concomitant]
  6. GALANTAMINE HYDROBROMIDE [Concomitant]
  7. THIAMINE (VIT B1) [Concomitant]
  8. CYANOCOBALAMIN [Concomitant]
  9. (OTHERS) [Concomitant]

REACTIONS (6)
  - BALANCE DISORDER [None]
  - DEAFNESS UNILATERAL [None]
  - FACIAL NERVE DISORDER [None]
  - HERPES ZOSTER OPHTHALMIC [None]
  - VERTIGO LABYRINTHINE [None]
  - VIITH NERVE PARALYSIS [None]
